FAERS Safety Report 9719582 (Version 1)
Quarter: 2013Q4

REPORT INFORMATION
  Report Type: Spontaneous
  Country: US (occurrence: US)
  Receive Date: 20131128
  Receipt Date: 20131128
  Transmission Date: 20140711
  Serious: No
  Sender: FDA-Public Use
  Company Number: US-BIOGENIDEC-2013BI112324

PATIENT
  Age: 54 Year
  Sex: Female

DRUGS (7)
  1. AVONEX [Suspect]
     Indication: RELAPSING-REMITTING MULTIPLE SCLEROSIS
     Route: 030
     Dates: start: 20130925
  2. METHYLPHENIDATE [Concomitant]
     Indication: BIPOLAR DISORDER
     Route: 048
     Dates: start: 20101101
  3. MEDICAL CANNIBUS [Concomitant]
     Indication: MUSCLE SPASMS
     Route: 055
     Dates: start: 20101101
  4. CHEEBA CHEWS:  CANNIBUS [Concomitant]
     Indication: PAIN
     Route: 048
     Dates: start: 20101101
  5. TRAMADOL-APAP [Concomitant]
     Indication: PAIN
     Route: 048
     Dates: start: 20101101
  6. VALTORAN [Concomitant]
     Indication: PLANTAR FASCIITIS
     Route: 002
     Dates: start: 20101101
  7. VALTORAN [Concomitant]
     Indication: CYST
     Route: 002
     Dates: start: 20101101

REACTIONS (7)
  - Gait disturbance [Unknown]
  - Hypoaesthesia [Unknown]
  - Fall [Recovered/Resolved]
  - Rib fracture [Recovered/Resolved with Sequelae]
  - Fractured coccyx [Not Recovered/Not Resolved]
  - Muscular weakness [Unknown]
  - Paraesthesia [Unknown]
